FAERS Safety Report 7967746-X (Version None)
Quarter: 2011Q4

REPORT INFORMATION
  Report Type: 
  Country: None (occurrence: None)
  Receive Date: 20111209
  Receipt Date: 20111209
  Transmission Date: 20120403
  Serious: Yes (Life-Threatening)
  Sender: FDA-Public Use
  Company Number: None

PATIENT
  Age: 84 Year
  Sex: Female
  Weight: 113.39 kg

DRUGS (1)
  1. DILAUDID [Suspect]
     Indication: PAIN
     Dosage: 4MG
     Dates: start: 20111130, end: 20111130

REACTIONS (6)
  - DYSPNOEA [None]
  - INCORRECT DOSE ADMINISTERED [None]
  - HEART RATE DECREASED [None]
  - FEELING COLD [None]
  - LOSS OF CONSCIOUSNESS [None]
  - EYE MOVEMENT DISORDER [None]
